FAERS Safety Report 9368718 (Version 2)
Quarter: 2013Q3

REPORT INFORMATION
  Report Type: Report from Study
  Country: JP (occurrence: JP)
  Receive Date: 20130626
  Receipt Date: 20130920
  Transmission Date: 20140515
  Serious: Yes (Death, Life-Threatening, Hospitalization)
  Sender: FDA-Public Use
  Company Number: JP-ROCHE-1240521

PATIENT
  Age: 81 Year
  Sex: Male
  Weight: 78 kg

DRUGS (9)
  1. METHOXY POLYETHYLENE GLYCOL-EPOETIN BETA [Suspect]
     Indication: NEPHROGENIC ANAEMIA
     Route: 058
     Dates: start: 20120529, end: 20120619
  2. FUROSEMIDE [Concomitant]
     Indication: GLOMERULONEPHRITIS CHRONIC
     Route: 048
     Dates: end: 20120627
  3. DIOVAN [Concomitant]
     Indication: GLOMERULONEPHRITIS CHRONIC
     Route: 048
     Dates: end: 20120627
  4. ALOSITOL [Concomitant]
     Indication: GLOMERULONEPHRITIS CHRONIC
     Route: 048
     Dates: end: 20120627
  5. LIVACT [Concomitant]
     Indication: GLOMERULONEPHRITIS CHRONIC
     Route: 048
     Dates: start: 20120403, end: 20120627
  6. SPIRONOLACTONE [Concomitant]
     Indication: GLOMERULONEPHRITIS CHRONIC
     Route: 048
     Dates: start: 20120403, end: 20120627
  7. FOLIAMIN [Concomitant]
     Indication: GLOMERULONEPHRITIS CHRONIC
     Route: 048
     Dates: start: 20120501, end: 20120627
  8. VITAMEDIN (JAPAN) [Concomitant]
     Indication: GLOMERULONEPHRITIS CHRONIC
     Route: 048
     Dates: start: 20120501, end: 20120627
  9. FERROMIA [Concomitant]
     Indication: GLOMERULONEPHRITIS CHRONIC
     Route: 048
     Dates: start: 20120501, end: 20120627

REACTIONS (4)
  - Arrhythmia [Fatal]
  - Cardiac failure congestive [Fatal]
  - Renal failure [Not Recovered/Not Resolved]
  - Diarrhoea [Not Recovered/Not Resolved]
